FAERS Safety Report 6647660-2 (Version None)
Quarter: 2010Q1

REPORT INFORMATION
  Report Type: 
  Country: None (occurrence: None)
  Receive Date: 20100323
  Receipt Date: 20100323
  Transmission Date: 20100710
  Serious: Yes (Other)
  Sender: FDA-Public Use
  Company Number: None

PATIENT
  Age: 63 Year
  Sex: Female
  Weight: 58.9676 kg

DRUGS (1)
  1. MOVIPREP [Suspect]
     Indication: COLONOSCOPY
     Dosage: 1 LITER DISSOLVED TWICE PO
     Route: 048
     Dates: start: 20100317, end: 20100317

REACTIONS (2)
  - ANXIETY [None]
  - DRUG EFFECT DECREASED [None]
